FAERS Safety Report 4309767-4 (Version None)
Quarter: 2004Q1

REPORT INFORMATION
  Report Type: 
  Country: None (occurrence: None)
  Receive Date: 20040301
  Receipt Date: 20040224
  Transmission Date: 20041129
  Serious: Yes (Hospitalization)
  Sender: FDA-Public Use
  Company Number: US-JNJFOC-20040100124

PATIENT
  Age: 90 Year
  Sex: Male

DRUGS (2)
  1. ULTRAM [Suspect]
     Indication: BONE PAIN
     Dosage: 2-3 TABLETS DAILY
  2. ULTRAM [Suspect]
     Indication: RESTLESS LEGS SYNDROME
     Dosage: 2-3 TABLETS DAILY

REACTIONS (1)
  - PNEUMONIA [None]
